FAERS Safety Report 9270517 (Version 2)
Quarter: 2013Q4

REPORT INFORMATION
  Report Type: Spontaneous
  Country: US (occurrence: US)
  Receive Date: 20130503
  Receipt Date: 20131004
  Transmission Date: 20140711
  Serious: Yes (Death, Hospitalization)
  Sender: FDA-Public Use
  Company Number: US-B.I. PHARMACEUTICALS,INC./RIDGEFIELD-2013-BI-12331BP

PATIENT
  Age: 83 Year
  Sex: Female
  Weight: 51.71 kg

DRUGS (7)
  1. PRADAXA [Suspect]
     Indication: ANTICOAGULANT THERAPY
     Dosage: 300 MG
     Dates: start: 20110724, end: 20110825
  2. PRADAXA [Suspect]
     Indication: ATRIAL FIBRILLATION
  3. SYNTHROID [Concomitant]
  4. ATENOLOL [Concomitant]
  5. ASPIRIN [Concomitant]
  6. TRAMADOL [Concomitant]
  7. CLONIDINE [Concomitant]

REACTIONS (6)
  - Gastrointestinal haemorrhage [Fatal]
  - Haemorrhagic anaemia [Unknown]
  - Myocardial infarction [Unknown]
  - Renal failure acute [Unknown]
  - Metabolic acidosis [Unknown]
  - Coagulopathy [Unknown]
